FAERS Safety Report 6501972-1 (Version None)
Quarter: 2009Q4

REPORT INFORMATION
  Report Type: 
  Country: None (occurrence: None)
  Receive Date: 20091216
  Receipt Date: 20091208
  Transmission Date: 20100525
  Serious: Yes (Hospitalization)
  Sender: FDA-Public Use
  Company Number: PHHY2009JP54374

PATIENT
  Sex: Male

DRUGS (7)
  1. COMTAN CMT+TAB [Suspect]
     Indication: DRUG EFFECT DECREASED
     Dosage: 100 MG, DAILY
     Route: 048
     Dates: start: 20071222, end: 20080125
  2. COMTAN CMT+TAB [Suspect]
     Dosage: 200 MG, DAILY
     Route: 048
     Dates: start: 20080125, end: 20080403
  3. CARBIDOPA AND LEVODOPA [Concomitant]
     Indication: PARKINSON'S DISEASE
     Dosage: 250 MG, UNK
     Route: 048
  4. CARBIDOPA AND LEVODOPA [Concomitant]
     Dosage: 300 MG, UNK
     Route: 048
  5. ROPINIROLE HYDROCHLORIDE [Concomitant]
     Indication: PARKINSON'S DISEASE
     Dosage: 3 MG, UNK
     Route: 048
  6. SELEGILINE HYDROCHLORIDE [Concomitant]
     Indication: PARKINSON'S DISEASE
     Dosage: 5.0 MG, UNK
     Route: 048
  7. DROXIDOPA [Concomitant]
     Indication: PARKINSON'S DISEASE
     Dosage: 200 MG, UNK
     Route: 048

REACTIONS (3)
  - ALANINE AMINOTRANSFERASE INCREASED [None]
  - DEHYDRATION [None]
  - RENAL FAILURE ACUTE [None]
